FAERS Safety Report 26107983 (Version 1)
Quarter: 2025Q4

REPORT INFORMATION
  Report Type: Report from Study
  Country: US (occurrence: US)
  Receive Date: 20251201
  Receipt Date: 20251201
  Transmission Date: 20260117
  Serious: Yes (Other)
  Sender: PFIZER
  Company Number: US-PFIZER INC-202500233038

PATIENT
  Age: 52 Year
  Sex: Male

DRUGS (6)
  1. ELRANATAMAB [Suspect]
     Active Substance: ELRANATAMAB
     Indication: Plasma cell myeloma
     Dosage: 3 DOSES UNTIL TOXICITY (1 FULL DOSE)
  2. ELRANATAMAB [Suspect]
     Active Substance: ELRANATAMAB
     Dosage: FREQUENCY REDUCTED TO Q2 WEEKS
  3. BACTRIM [Concomitant]
     Active Substance: SULFAMETHOXAZOLE\TRIMETHOPRIM
  4. ATOVAQUONE [Concomitant]
     Active Substance: ATOVAQUONE
  5. ACYCLOVIR [Concomitant]
     Active Substance: ACYCLOVIR
  6. HUMAN IMMUNOGLOBULIN G [Concomitant]
     Active Substance: HUMAN IMMUNOGLOBULIN G
     Route: 042

REACTIONS (1)
  - Dysgeusia [Recovered/Resolved]
